FAERS Safety Report 15133795 (Version 1)
Quarter: 2018Q3

REPORT INFORMATION
  Report Type: Spontaneous
  Country: IT (occurrence: IT)
  Receive Date: 20180712
  Receipt Date: 20180712
  Transmission Date: 20181010
  Serious: Yes (Hospitalization)
  Sender: FDA-Public Use
  Company Number: IT-ELI_LILLY_AND_COMPANY-IT201807000997

PATIENT
  Age: 11 Year
  Sex: Female
  Weight: 49 kg

DRUGS (1)
  1. HUMALOG [Suspect]
     Active Substance: INSULIN LISPRO
     Indication: TYPE 1 DIABETES MELLITUS
     Dosage: 5 IU, DAILY
     Route: 058
     Dates: start: 20180101, end: 20180616

REACTIONS (4)
  - Acidosis [Unknown]
  - Hyperglycaemia [Unknown]
  - Vomiting [Unknown]
  - Acetonaemia [Unknown]

NARRATIVE: CASE EVENT DATE: 20180616
